FAERS Safety Report 12706058 (Version 2)
Quarter: 2016Q3

REPORT INFORMATION
  Report Type: Spontaneous
  Country: US (occurrence: US)
  Receive Date: 20160901
  Receipt Date: 20160901
  Transmission Date: 20161109
  Serious: No
  Sender: FDA-Public Use
  Company Number: US-JAZZ-2016-US-007804

PATIENT
  Sex: Male

DRUGS (4)
  1. XYREM [Suspect]
     Active Substance: SODIUM OXYBATE
     Indication: PRODUCT USED FOR UNKNOWN INDICATION
     Dosage: 6 G, BID
     Route: 048
     Dates: start: 200210, end: 200804
  2. LUNESTA [Concomitant]
     Active Substance: ESZOPICLONE
  3. XYREM [Suspect]
     Active Substance: SODIUM OXYBATE
     Dosage: 6.75 G, BID
     Route: 048
     Dates: start: 200804, end: 200809
  4. XYREM [Suspect]
     Active Substance: SODIUM OXYBATE
     Dosage: 7.5 G, BID
     Route: 048
     Dates: start: 200809

REACTIONS (2)
  - Prescribed overdose [Unknown]
  - Hyperhidrosis [Not Recovered/Not Resolved]
